FAERS Safety Report 16085945 (Version 4)
Quarter: 2019Q1

REPORT INFORMATION
  Report Type: Spontaneous
  Country: NL (occurrence: NL)
  Receive Date: 20190318
  Receipt Date: 20190321
  Transmission Date: 20190418
  Serious: Yes (Other)
  Sender: FDA-Public Use
  Company Number: NL-ENDO PHARMACEUTICALS INC-2019-102792

PATIENT
  Age: 73 Year
  Sex: Male

DRUGS (9)
  1. DICLOFENAC [Concomitant]
     Active Substance: DICLOFENAC
     Indication: PAIN
     Dosage: 50 MG, TID
     Route: 065
  2. METHYLPREDNISOLONE. [Concomitant]
     Active Substance: METHYLPREDNISOLONE
     Indication: PRODUCT USED FOR UNKNOWN INDICATION
     Dosage: 80 MG, UNKNOWN
     Route: 008
  3. MIDAZOLAM [Concomitant]
     Active Substance: MIDAZOLAM HYDROCHLORIDE
     Indication: SEDATION
     Dosage: UNK UNKNOWN, UNKNOWN
     Route: 065
  4. CEFAZOLINE                         /00288501/ [Concomitant]
     Active Substance: CEFAZOLIN
     Indication: PRODUCT USED FOR UNKNOWN INDICATION
     Dosage: 2 G, UNKNOWN
     Route: 042
  5. ROPIVACAINE. [Concomitant]
     Active Substance: ROPIVACAINE HYDROCHLORIDE
     Indication: PRODUCT USED FOR UNKNOWN INDICATION
     Dosage: 6 MG, UNKNOWN
     Route: 008
  6. PROPOFOL. [Concomitant]
     Active Substance: PROPOFOL
     Indication: SEDATION
     Dosage: UNK UNKNOWN, UNKNOWN
     Route: 065
  7. DEXAMETHASONE. [Suspect]
     Active Substance: DEXAMETHASONE
     Indication: HYPERSENSITIVITY
     Dosage: 0.5 MG, DAILY
     Route: 048
  8. HYALURONIDASE [Concomitant]
     Active Substance: HYALURONIDASE
     Indication: PRODUCT USED FOR UNKNOWN INDICATION
     Dosage: 600 UNKNOWN, UNKNOWN
     Route: 008
  9. REMIFENTANIL [Concomitant]
     Active Substance: REMIFENTANIL
     Indication: SEDATION
     Dosage: UNK UNKNOWN, UNKNOWN
     Route: 065

REACTIONS (1)
  - Retinal haemorrhage [Recovering/Resolving]
